FAERS Safety Report 9136894 (Version 1)
Quarter: 2013Q1

REPORT INFORMATION
  Report Type: Spontaneous
  Country: US (occurrence: US)
  Receive Date: 20130304
  Receipt Date: 20130304
  Transmission Date: 20140127
  Serious: Yes (Death)
  Sender: FDA-Public Use
  Company Number: PHEH2013US004974

PATIENT
  Sex: Female

DRUGS (1)
  1. TASIGNA [Suspect]
     Indication: CHRONIC MYELOID LEUKAEMIA
     Dosage: 200 MG/400 MG ALTERNATE DOSE EVERY OTHER DAY.
     Route: 048
     Dates: start: 20100911, end: 20130211

REACTIONS (2)
  - Organ failure [Fatal]
  - Cardiac failure [Fatal]
